FAERS Safety Report 9970196 (Version 3)
Quarter: 2014Q3

REPORT INFORMATION
  Report Type: Report from Study
  Country: CN (occurrence: CN)
  Receive Date: 20140306
  Receipt Date: 20140811
  Transmission Date: 20150326
  Serious: Yes (Other)
  Sender: FDA-Public Use
  Company Number: CN-ASTELLAS-2014US002201

PATIENT
  Sex: Female

DRUGS (1)
  1. ERLOTINIB [Suspect]
     Active Substance: ERLOTINIB
     Indication: NON-SMALL CELL LUNG CANCER
     Route: 048
     Dates: start: 20130416

REACTIONS (5)
  - Muscle strain [Recovering/Resolving]
  - Motion sickness [Unknown]
  - Foot fracture [Unknown]
  - Diarrhoea [Unknown]
  - Fall [Unknown]
